FAERS Safety Report 13749580 (Version 2)
Quarter: 2017Q3

REPORT INFORMATION
  Report Type: Spontaneous
  Country: GB (occurrence: GB)
  Receive Date: 20170713
  Receipt Date: 20170725
  Transmission Date: 20171127
  Serious: Yes (Other)
  Sender: FDA-Public Use
  Company Number: GB-PFIZER INC-2017297933

PATIENT
  Age: 28 Year
  Sex: Male

DRUGS (5)
  1. ITRACONAZOLE. [Concomitant]
     Active Substance: ITRACONAZOLE
     Indication: TUBERCULOSIS
     Dosage: UNK
     Dates: start: 201305
  2. AMPHOTERICIN [Concomitant]
     Active Substance: AMPHOTERICIN B
     Indication: TUBERCULOSIS
     Dosage: UNK
     Dates: start: 201305
  3. FLUCYTOSINE. [Concomitant]
     Active Substance: FLUCYTOSINE
     Indication: CRYPTOCOCCOSIS
     Dosage: UNK
     Dates: start: 201305
  4. FLUCONAZOLE. [Suspect]
     Active Substance: FLUCONAZOLE
     Indication: CRYPTOCOCCOSIS
     Dosage: UNK
     Route: 065
     Dates: start: 201305
  5. VORICONAZOLE. [Concomitant]
     Active Substance: VORICONAZOLE
     Indication: TUBERCULOSIS
     Dosage: UNK
     Route: 048
     Dates: start: 201305

REACTIONS (1)
  - Drug resistance [Unknown]
